FAERS Safety Report 18822603 (Version 1)
Quarter: 2021Q1

REPORT INFORMATION
  Report Type: Spontaneous
  Country: BY (occurrence: BY)
  Receive Date: 20210202
  Receipt Date: 20210202
  Transmission Date: 20210419
  Serious: Yes (Life-Threatening, Other)
  Sender: FDA-Public Use
  Company Number: BY-GILEAD-2021-0514382

PATIENT
  Age: 47 Year
  Sex: Male
  Weight: 65 kg

DRUGS (16)
  1. LINEZOLID. [Suspect]
     Active Substance: LINEZOLID
     Dosage: 300 MG, QD
     Route: 048
     Dates: start: 20201120
  2. COTRIMOXAZOLE [Concomitant]
     Active Substance: SULFAMETHOXAZOLE\TRIMETHOPRIM
  3. ENTEROSEPT [DIIODOHYDROXYQUINOLINE] [Concomitant]
  4. DOLUTEGRAVIR [Suspect]
     Active Substance: DOLUTEGRAVIR
     Indication: HIV INFECTION
     Dosage: 50 MG, QD
     Route: 048
     Dates: start: 20201001
  5. CYCLOSERINE. [Suspect]
     Active Substance: CYCLOSERINE
     Indication: TUBERCULOSIS
     Dosage: 750 MG, QD
     Route: 048
     Dates: start: 20200917, end: 20201111
  6. DUOVIR [Concomitant]
  7. LINEZOLID. [Suspect]
     Active Substance: LINEZOLID
     Indication: TUBERCULOSIS
     Dosage: 600 MG, QD
     Route: 048
     Dates: start: 20200917, end: 20201117
  8. DACLATASVIR. [Concomitant]
     Active Substance: DACLATASVIR
  9. DELAMANID [Suspect]
     Active Substance: DELAMANID
     Indication: TUBERCULOSIS
     Dosage: 200 MG, QD
     Route: 048
     Dates: start: 20200917
  10. FOLIC ACID. [Concomitant]
     Active Substance: FOLIC ACID
  11. CLOFAZIMINE [Concomitant]
     Active Substance: CLOFAZIMINE
  12. KLOPIDOGREL [Concomitant]
  13. BISOPROLOL [Concomitant]
     Active Substance: BISOPROLOL
  14. SPIRONOLACTON [Concomitant]
     Active Substance: SPIRONOLACTONE
  15. SOFOSBUVIR [Suspect]
     Active Substance: SOFOSBUVIR
     Indication: HEPATITIS C
     Dosage: 400 MG, QD
     Route: 048
     Dates: start: 20200902
  16. BEDAQUILINE [Concomitant]
     Active Substance: BEDAQUILINE

REACTIONS (9)
  - Cerebral atrophy [Unknown]
  - Cerebral microangiopathy [Unknown]
  - Epilepsy [Unknown]
  - White matter lesion [Unknown]
  - Polyneuropathy [Unknown]
  - Pituitary tumour benign [Unknown]
  - Gastrointestinal disorder [Unknown]
  - Anaemia [Recovering/Resolving]
  - Metabolic encephalopathy [Unknown]

NARRATIVE: CASE EVENT DATE: 20200928
